FAERS Safety Report 14663275 (Version 7)
Quarter: 2020Q2

REPORT INFORMATION
  Report Type: Report from Study
  Country: US (occurrence: US)
  Receive Date: 20180321
  Receipt Date: 20200421
  Transmission Date: 20200713
  Serious: Yes (Other)
  Sender: FDA-Public Use
  Company Number: US-ROCHE-2079549

PATIENT
  Sex: Male
  Weight: 168.3 kg

DRUGS (20)
  1. PLAVIX [Concomitant]
     Active Substance: CLOPIDOGREL BISULFATE
     Route: 048
  2. TAMSULOSIN [Concomitant]
     Active Substance: TAMSULOSIN
     Route: 048
  3. CRESTOR [Concomitant]
     Active Substance: ROSUVASTATIN CALCIUM
     Dosage: 1/2 TABLET, 6):
     Route: 048
  4. LEVOTHYROXINE. [Concomitant]
     Active Substance: LEVOTHYROXINE
     Route: 048
     Dates: start: 20130820
  5. TESTOSTERONE CYPIONATE. [Concomitant]
     Active Substance: TESTOSTERONE CYPIONATE
     Dosage: 200 MG/ML INJECT IN 1ML EVERY 10 DAYS
     Route: 030
  6. FUROSEMIDE. [Concomitant]
     Active Substance: FUROSEMIDE
  7. ANDROGEL [Concomitant]
     Active Substance: TESTOSTERONE
     Dosage: 1 PUMP A DAY
     Route: 065
  8. FISH OIL [Concomitant]
     Active Substance: FISH OIL
     Route: 065
  9. ACETAMINOPHEN. [Concomitant]
     Active Substance: ACETAMINOPHEN
     Route: 048
  10. NUTROPIN AQ [Suspect]
     Active Substance: SOMATROPIN
     Indication: GROWTH HORMONE DEFICIENCY
     Route: 058
  11. LASIX [Concomitant]
     Active Substance: FUROSEMIDE
     Route: 048
  12. AMOXICILLIN. [Concomitant]
     Active Substance: AMOXICILLIN
     Route: 048
  13. CHOLECALCIFEROL [Concomitant]
     Active Substance: CHOLECALCIFEROL
     Route: 048
  14. NUTROPIN AQ [Suspect]
     Active Substance: SOMATROPIN
     Indication: ESSENTIAL HYPERTENSION
  15. TORSEMIDE. [Concomitant]
     Active Substance: TORSEMIDE
  16. NUTROPIN AQ [Suspect]
     Active Substance: SOMATROPIN
     Indication: HYPOPITUITARISM
     Dosage: NUSPIN 10, 0.1 MG DOSINJG INCREMENTS, 0.3MG/INJ 7 INJECTIONS/WEEK
     Route: 058
  17. METFORMIN [Suspect]
     Active Substance: METFORMIN HYDROCHLORIDE
     Indication: TYPE 2 DIABETES MELLITUS
     Route: 065
  18. ATENOLOL. [Concomitant]
     Active Substance: ATENOLOL
     Route: 048
  19. LEVOTHYROXINE. [Concomitant]
     Active Substance: LEVOTHYROXINE
     Route: 065
  20. ROSUVASTATIN. [Concomitant]
     Active Substance: ROSUVASTATIN
     Route: 065

REACTIONS (32)
  - Pain [Unknown]
  - Blood glucose increased [Unknown]
  - Blood thyroid stimulating hormone decreased [Unknown]
  - Plantar fasciitis [Unknown]
  - Muscle spasms [Unknown]
  - Arthralgia [Unknown]
  - Impetigo [Unknown]
  - Pneumonia bacterial [Unknown]
  - Asthenia [Unknown]
  - Myalgia [Unknown]
  - Feeling abnormal [Unknown]
  - Pain in extremity [Unknown]
  - Pollakiuria [Unknown]
  - Benign prostatic hyperplasia [Unknown]
  - Injury [Unknown]
  - Deafness [Unknown]
  - Chronic obstructive pulmonary disease [Unknown]
  - Fatigue [Unknown]
  - Abdominal distension [Unknown]
  - Obesity [Unknown]
  - Atrial fibrillation [Unknown]
  - Sensory disturbance [Unknown]
  - Onychomycosis [Unknown]
  - Joint injury [Unknown]
  - Sleep apnoea syndrome [Unknown]
  - Angina pectoris [Unknown]
  - Oedema [Unknown]
  - Gastrooesophageal reflux disease [Unknown]
  - Balance disorder [Unknown]
  - Muscular weakness [Unknown]
  - Ingrowing nail [Unknown]
  - Dysphagia [Unknown]

NARRATIVE: CASE EVENT DATE: 2013
